FAERS Safety Report 10638424 (Version 2)
Quarter: 2015Q1

REPORT INFORMATION
  Report Type: Spontaneous
  Country: US (occurrence: US)
  Receive Date: 20141208
  Receipt Date: 20150116
  Transmission Date: 20150720
  Serious: No
  Sender: FDA-Public Use
  Company Number: US-009507513-1412USA002190

PATIENT
  Sex: Female

DRUGS (1)
  1. IMPLANON [Suspect]
     Active Substance: ETONOGESTREL
     Dosage: STRENGHT: 68 (UNITS NOT PROVIDED). DOSE: 1 ROD
     Route: 059
     Dates: start: 201111

REACTIONS (4)
  - Medical device complication [Recovered/Resolved]
  - No adverse event [Unknown]
  - Incorrect drug administration duration [Unknown]
  - Device deployment issue [Not Recovered/Not Resolved]

NARRATIVE: CASE EVENT DATE: 201111
